FAERS Safety Report 16806502 (Version 1)
Quarter: 2019Q3

REPORT INFORMATION
  Report Type: Spontaneous
  Country: FR (occurrence: FR)
  Receive Date: 20190913
  Receipt Date: 20190913
  Transmission Date: 20191005
  Serious: Yes (Hospitalization)
  Sender: FDA-Public Use
  Company Number: FR-MYLANLABS-2019M1084764

PATIENT
  Age: 62 Year
  Sex: Female
  Weight: 74.7 kg

DRUGS (13)
  1. VANCOMYCINE                        /00314401/ [Concomitant]
     Active Substance: VANCOMYCIN
  2. ENDOXAN                            /00021101/ [Suspect]
     Active Substance: CYCLOPHOSPHAMIDE
     Indication: ACUTE LYMPHOCYTIC LEUKAEMIA
     Dosage: 1420 MILLIGRAM, QD
     Route: 042
     Dates: start: 20190225, end: 20190225
  3. LEVOTHYROX [Concomitant]
     Active Substance: LEVOTHYROXINE
     Dosage: UNK
  4. PIPERACILLIN AND TAZOBACTAM [Suspect]
     Active Substance: PIPERACILLIN SODIUM\TAZOBACTAM SODIUM
     Indication: BACTERAEMIA
     Dosage: 16 GRAM, QD
     Route: 042
     Dates: start: 20190220, end: 20190301
  5. ZARZIO [Suspect]
     Active Substance: FILGRASTIM
     Indication: IMMUNODEFICIENCY
     Dosage: 1 DOSAGE FORM, QD
     Route: 042
     Dates: start: 20190226, end: 20190307
  6. VINCRISTINE HOSPIRA [Suspect]
     Active Substance: VINCRISTINE
     Indication: ACUTE LYMPHOCYTIC LEUKAEMIA
     Dosage: 2 MILLIGRAM, QD
     Route: 042
     Dates: start: 20190225, end: 20190225
  7. AMBISOME [Concomitant]
     Active Substance: AMPHOTERICIN B
     Dosage: UNK
  8. ACLOTINE [Suspect]
     Active Substance: ANTITHROMBIN III HUMAN
     Indication: THROMBOSIS PROPHYLAXIS
     Dosage: 2000 INTERNATIONAL UNIT, QD
     Route: 042
     Dates: start: 20190225, end: 20190225
  9. DEXPANTHENOL. [Concomitant]
     Active Substance: DEXPANTHENOL
  10. OXYNORM [Concomitant]
     Active Substance: OXYCODONE HYDROCHLORIDE
     Dosage: UNK
  11. HEPARINE CHOAY [Suspect]
     Active Substance: HEPARIN SODIUM
     Indication: THROMBOSIS PROPHYLAXIS
     Dosage: 8000 INTERNATIONAL UNIT, QD
     Route: 042
     Dates: start: 20190219, end: 20190301
  12. KIDROLASE [Suspect]
     Active Substance: ASPARAGINASE
     Indication: ACUTE LYMPHOCYTIC LEUKAEMIA
     Dosage: 18800 INTERNATIONAL UNIT, QD
     Route: 042
     Dates: start: 20190218, end: 20190220
  13. ULTRAPROCT                         /00225401/ [Concomitant]

REACTIONS (3)
  - Cholestasis [Recovering/Resolving]
  - Confusional state [Recovered/Resolved]
  - Dehydration [Recovered/Resolved]

NARRATIVE: CASE EVENT DATE: 20190301
